FAERS Safety Report 4562033-4 (Version None)
Quarter: 2005Q1

REPORT INFORMATION
  Report Type: 
  Country: None (occurrence: None)
  Receive Date: 20050125
  Receipt Date: 20050125
  Transmission Date: 20050727
  Serious: Yes (Hospitalization)
  Sender: FDA-Public Use
  Company Number: None

PATIENT
  Age: 82 Year
  Sex: Male
  Weight: 49.6 kg

DRUGS (12)
  1. GATIFLOXACIN [Suspect]
     Indication: BRONCHITIS
     Dosage: 400 MG, 400MG QD, ORAL
     Route: 048
     Dates: start: 20040816, end: 20040822
  2. TRAZODONE HCL [Concomitant]
  3. MIRTAZAPINE [Concomitant]
  4. CLONAZEPAM [Concomitant]
  5. ETODOLAC [Concomitant]
  6. LOVASTATIN [Concomitant]
  7. FELODIPINE [Concomitant]
  8. GATIFLOXACIN [Concomitant]
  9. DM 10/GUAIFENESN [Concomitant]
  10. FENTANYL [Concomitant]
  11. THERACYS [Concomitant]
  12. ACETAMINOPHEN [Concomitant]

REACTIONS (3)
  - CLOSTRIDIUM COLITIS [None]
  - DEHYDRATION [None]
  - HYPONATRAEMIA [None]
